FAERS Safety Report 13559750 (Version 1)
Quarter: 2017Q2

REPORT INFORMATION
  Report Type: Spontaneous
  Country: PT (occurrence: PT)
  Receive Date: 20170518
  Receipt Date: 20170518
  Transmission Date: 20170830
  Serious: Yes (Hospitalization, Other)
  Sender: FDA-Public Use
  Company Number: PHHY2017PT069988

PATIENT
  Age: 89 Year
  Sex: Female

DRUGS (1)
  1. INDAPAMIDE. [Suspect]
     Active Substance: INDAPAMIDE
     Indication: HYPERTENSION
     Route: 065

REACTIONS (5)
  - Ileus [Unknown]
  - Peritoneal disorder [Unknown]
  - Biliary fistula [Unknown]
  - Pneumonia [Unknown]
  - Organ failure [Unknown]
